FAERS Safety Report 16635587 (Version 1)
Quarter: 2019Q3

REPORT INFORMATION
  Report Type: Spontaneous
  Country: GB (occurrence: GB)
  Receive Date: 20190726
  Receipt Date: 20190726
  Transmission Date: 20191004
  Serious: Yes (Other)
  Sender: FDA-Public Use
  Company Number: GB-TEVA-2019-GB-1083473

PATIENT
  Age: 72 Year
  Sex: Male
  Weight: 87 kg

DRUGS (17)
  1. HUMULIN M3 [Concomitant]
     Active Substance: INSULIN HUMAN
     Dosage: USE AS DIRECTED
     Dates: start: 20181106
  2. TRIMETHOPRIM. [Concomitant]
     Active Substance: TRIMETHOPRIM
     Dosage: 2 DOSAGE FORM
     Dates: start: 20190620
  3. TRAMADOL. [Concomitant]
     Active Substance: TRAMADOL
     Dosage: FOUR TIMES DAILY WHEN REQUIRED, 2 DOSAGE FORM
     Dates: start: 20190130
  4. LANSOPRAZOLE. [Concomitant]
     Active Substance: LANSOPRAZOLE
     Dosage: ONE DAILY, 1 DOSAGE FORM
     Dates: start: 20171004
  5. NAPROXEN. [Concomitant]
     Active Substance: NAPROXEN
     Dosage: 2 DOSAGE FORM
     Dates: start: 20190218
  6. MACROGOL [Concomitant]
     Active Substance: POLYETHYLENE GLYCOLS
     Dosage: AS REQUIRED, 1 DOSAGE FORM
     Dates: start: 20171004
  7. MAXIDEX [Concomitant]
     Active Substance: DEXAMETHASONE
     Dosage: 4 GTT
     Dates: start: 20190513, end: 20190523
  8. SOLU-CORTEF [Concomitant]
     Active Substance: HYDROCORTISONE SODIUM SUCCINATE
     Dosage: USE AS DIRECTED
     Dates: start: 20190417, end: 20190418
  9. LISINOPRIL. [Concomitant]
     Active Substance: LISINOPRIL
     Dosage: ONE DAILY, 1 DOSAGE FORM
     Dates: start: 20180717
  10. LINAGLIPTIN [Concomitant]
     Active Substance: LINAGLIPTIN
     Dosage: 1 DOSAGE FORM
     Dates: start: 20190507
  11. CIPROFLOXACIN. [Suspect]
     Active Substance: CIPROFLOXACIN
     Indication: PROSTATITIS
     Dosage: 500 MG
     Route: 065
     Dates: start: 20190620
  12. SIMVASTATIN. [Concomitant]
     Active Substance: SIMVASTATIN
     Dosage: 1 DOSAGE FORM
     Dates: start: 20180926
  13. DULOXETINE. [Concomitant]
     Active Substance: DULOXETINE
     Dosage: TAKE ONE DAILY, 1DOSAGE FORM
     Dates: start: 20181204
  14. DERMOL [Concomitant]
     Active Substance: BENZALKONIUM CHLORIDE\CHLORHEXIDINE HYDROCHLORIDE\ISOPROPYL MYRISTATE\PARAFFIN
     Dosage: USE AS DIRECTED
     Dates: start: 20180308
  15. INDAPAMIDE. [Concomitant]
     Active Substance: INDAPAMIDE
     Dosage: EACH MORNING, 1 DOSAGE FORM
     Dates: start: 20190226
  16. LIDOCAINE. [Concomitant]
     Active Substance: LIDOCAINE
     Dosage: USE AS DIRECTED
     Dates: start: 20190417, end: 20190418
  17. METFORMIN [Concomitant]
     Active Substance: METFORMIN HYDROCHLORIDE
     Dosage: 4 DOSAGE FORM
     Dates: start: 20190218

REACTIONS (1)
  - Tendon pain [Unknown]

NARRATIVE: CASE EVENT DATE: 20190620
